FAERS Safety Report 10069681 (Version 4)
Quarter: 2017Q3

REPORT INFORMATION
  Report Type: Spontaneous
  Country: CO (occurrence: CO)
  Receive Date: 20140410
  Receipt Date: 20170716
  Transmission Date: 20171127
  Serious: Yes (Death, Hospitalization, Other)
  Sender: FDA-Public Use
  Company Number: CO-AMGEN INC.-COLSP2014025365

PATIENT
  Age: 71 Year
  Sex: Female
  Weight: 44 kg

DRUGS (1)
  1. ENBREL [Suspect]
     Active Substance: ETANERCEPT
     Indication: RHEUMATOID ARTHRITIS
     Dosage: 50 MG, WEEKLY
     Route: 058
     Dates: start: 1997, end: 20140516

REACTIONS (3)
  - Dementia Alzheimer^s type [Not Recovered/Not Resolved]
  - Death [Fatal]
  - Amoebiasis [Not Recovered/Not Resolved]

NARRATIVE: CASE EVENT DATE: 20140402
